FAERS Safety Report 5734499-5 (Version None)
Quarter: 2008Q2

REPORT INFORMATION
  Report Type: 
  Country: None (occurrence: None)
  Receive Date: 20080508
  Receipt Date: 20080508
  Transmission Date: 20081010
  Serious: Yes (Other)
  Sender: FDA-Public Use
  Company Number: None

PATIENT
  Age: 64 Year
  Sex: Female
  Weight: 50.8029 kg

DRUGS (1)
  1. CHANTIX [Suspect]
     Indication: SMOKING CESSATION THERAPY
     Dosage: .5 MG. 2X/DAY PO
     Route: 048
     Dates: start: 20080102, end: 20080425

REACTIONS (8)
  - AGITATION [None]
  - FLUID INTAKE REDUCED [None]
  - GINGIVAL PAIN [None]
  - GLOSSODYNIA [None]
  - MOUTH ULCERATION [None]
  - ORAL DISCOMFORT [None]
  - ORAL INTAKE REDUCED [None]
  - PAIN [None]
